FAERS Safety Report 6992548-0 (Version None)
Quarter: 2010Q3

REPORT INFORMATION
  Report Type: 
  Country: None (occurrence: None)
  Receive Date: 20100917
  Receipt Date: 20100907
  Transmission Date: 20110219
  Serious: Yes (Life-Threatening, Hospitalization, Other)
  Sender: FDA-Public Use
  Company Number: DE-ROCHE-720280

PATIENT
  Sex: Female

DRUGS (9)
  1. ROACTEMRA [Suspect]
     Indication: RHEUMATOID ARTHRITIS
     Route: 042
     Dates: start: 20100401
  2. METHOTREXATE SODIUM [Suspect]
     Indication: RHEUMATOID ARTHRITIS
     Route: 065
  3. MARCUMAR [Concomitant]
  4. HUMIRA [Concomitant]
  5. REMICADE [Concomitant]
  6. ANALGETICA [Concomitant]
  7. ANTIHYPERTENSIVE NOS [Concomitant]
  8. CORTICOSTEROIDS [Concomitant]
  9. PROTON PUMP INHIBITORS [Concomitant]

REACTIONS (5)
  - ABDOMINAL ABSCESS [None]
  - CHOLECYSTITIS [None]
  - DIVERTICULUM INTESTINAL [None]
  - PERFORATION BILE DUCT [None]
  - PERITONEAL INFECTION [None]
